FAERS Safety Report 10236196 (Version 1)
Quarter: 2014Q2

REPORT INFORMATION
  Report Type: Spontaneous
  Country: GB (occurrence: GB)
  Receive Date: 20140613
  Receipt Date: 20140613
  Transmission Date: 20141212
  Serious: Yes (Other)
  Sender: FDA-Public Use
  Company Number: PHHY2014GB069579

PATIENT
  Age: 72 Year
  Sex: Female
  Weight: 53 kg

DRUGS (4)
  1. ALENDRONIC ACID [Suspect]
     Dates: start: 20140127
  2. ADALAT [Concomitant]
     Dates: start: 20140127, end: 20140224
  3. ADCAL [Concomitant]
     Dates: start: 20140127, end: 20140224
  4. PARACETAMOL [Concomitant]
     Dates: start: 20140127, end: 20140224

REACTIONS (1)
  - Depression [Recovered/Resolved]
